FAERS Safety Report 21521825 (Version 2)
Quarter: 2024Q1

REPORT INFORMATION
  Report Type: Report from Study
  Country: US (occurrence: US)
  Receive Date: 20221028
  Receipt Date: 20240131
  Transmission Date: 20240409
  Serious: Yes (Death)
  Sender: FDA-Public Use
  Company Number: US-ABBVIE-4178987

PATIENT
  Age: 70 Year
  Sex: Male

DRUGS (1)
  1. HUMIRA [Suspect]
     Active Substance: ADALIMUMAB
     Indication: Ankylosing spondylitis
     Dosage: CITRATE FREE FORM STRENGTH: 40 MILLIGRAM
     Route: 058
     Dates: start: 20200609

REACTIONS (1)
  - Death [Fatal]

NARRATIVE: CASE EVENT DATE: 20220924
